FAERS Safety Report 13346392 (Version 1)
Quarter: 2017Q1

REPORT INFORMATION
  Report Type: Spontaneous
  Country: US (occurrence: US)
  Receive Date: 20170317
  Receipt Date: 20170317
  Transmission Date: 20170428
  Serious: No
  Sender: FDA-Public Use
  Company Number: US-DEPOMED, INC.-US-2016DEP008234

PATIENT

DRUGS (2)
  1. GRALISE [Suspect]
     Active Substance: GABAPENTIN
     Dosage: 600 MG, QD
     Route: 048
     Dates: start: 201510, end: 201510
  2. GRALISE [Suspect]
     Active Substance: GABAPENTIN
     Indication: PRURITUS
     Dosage: 600 MG, QD, TITRATED UP TO 900 MG, QD
     Route: 048
     Dates: start: 201510, end: 201510

REACTIONS (2)
  - Drug titration error [Recovered/Resolved]
  - Off label use [Recovered/Resolved]

NARRATIVE: CASE EVENT DATE: 201510
